FAERS Safety Report 19638939 (Version 1)
Quarter: 2021Q3

REPORT INFORMATION
  Report Type: Spontaneous
  Country: US (occurrence: US)
  Receive Date: 20210729
  Receipt Date: 20210729
  Transmission Date: 20211014
  Serious: No
  Sender: FDA-Public Use
  Company Number: US-SA-2021SA247927

PATIENT
  Sex: Female

DRUGS (2)
  1. DUPIXENT [Suspect]
     Active Substance: DUPILUMAB
     Dosage: 300 MG (MAINTAINANCE DOSE)
  2. DUPIXENT [Suspect]
     Active Substance: DUPILUMAB
     Dosage: LOADING DOSE

REACTIONS (2)
  - Drug administered in wrong device [Unknown]
  - Incorrect dose administered [Unknown]
